FAERS Safety Report 9169881 (Version 2)
Quarter: 2013Q1

REPORT INFORMATION
  Report Type: Spontaneous
  Country: CO (occurrence: CO)
  Receive Date: 20130319
  Receipt Date: 20130325
  Transmission Date: 20140127
  Serious: Yes (Hospitalization)
  Sender: FDA-Public Use
  Company Number: CO-009507513-1303COL007297

PATIENT
  Age: 56 Year
  Sex: Female

DRUGS (3)
  1. PEG-INTRON [Suspect]
     Dosage: UNK UNK, QW
     Route: 059
     Dates: start: 20120927
  2. REBETOL [Suspect]
     Dosage: 600 MG DAILY
     Route: 048
     Dates: start: 20120927
  3. VICTRELIS [Suspect]
     Dosage: 2400 MG DAILY
     Route: 048

REACTIONS (3)
  - Urinary tract infection [Unknown]
  - Bladder spasm [Unknown]
  - Dysuria [Unknown]
